FAERS Safety Report 12696249 (Version 1)
Quarter: 2016Q3

REPORT INFORMATION
  Report Type: Spontaneous
  Country: US (occurrence: US)
  Receive Date: 20160829
  Receipt Date: 20160829
  Transmission Date: 20161109
  Serious: No
  Sender: FDA-Public Use
  Company Number: US-ASTRAZENECA-2016SE66089

PATIENT
  Age: 22889 Day
  Sex: Male
  Weight: 135.2 kg

DRUGS (1)
  1. BYDUREON [Suspect]
     Active Substance: EXENATIDE
     Indication: TYPE 2 DIABETES MELLITUS
     Route: 058
     Dates: start: 20160510

REACTIONS (6)
  - Injection site nodule [Recovered/Resolved]
  - Pain [Recovered/Resolved]
  - Pruritus [Recovered/Resolved]
  - Needle issue [Unknown]
  - Injection site haemorrhage [Recovered/Resolved]
  - Injection site extravasation [Unknown]

NARRATIVE: CASE EVENT DATE: 20160510
